FAERS Safety Report 20775984 (Version 1)
Quarter: 2022Q2

REPORT INFORMATION
  Report Type: Spontaneous
  Country: CN (occurrence: CN)
  Receive Date: 20220502
  Receipt Date: 20220502
  Transmission Date: 20220721
  Serious: Yes (Other)
  Sender: FDA-Public Use
  Company Number: CN-PFIZER INC-202200617391

PATIENT
  Age: 39 Year
  Sex: Male
  Weight: 74.7 kg

DRUGS (2)
  1. ATORVASTATIN CALCIUM [Suspect]
     Active Substance: ATORVASTATIN CALCIUM
     Indication: Nephrotic syndrome
     Dosage: 20 MG, 1X/DAY
     Route: 048
     Dates: start: 20220209, end: 20220409
  2. DIPYRIDAMOLE [Suspect]
     Active Substance: DIPYRIDAMOLE
     Indication: Nephrotic syndrome
     Dosage: 50 MG, 1X/DAY
     Route: 048
     Dates: start: 20220209, end: 20220409

REACTIONS (1)
  - Alanine aminotransferase increased [Recovering/Resolving]

NARRATIVE: CASE EVENT DATE: 20220409
